FAERS Safety Report 4582733-X (Version None)
Quarter: 2005Q1

REPORT INFORMATION
  Report Type: 
  Country: None (occurrence: None)
  Receive Date: 20050125
  Receipt Date: 20040602
  Transmission Date: 20050727
  Serious: Yes (Other)
  Sender: FDA-Public Use
  Company Number: PHEH2004US06060

PATIENT
  Age: 76 Year
  Sex: Female

DRUGS (9)
  1. SANDOSTATIN LAR [Suspect]
     Indication: CARCINOID SYNDROME
     Dosage: QMO, INJECTION NOS
     Dates: start: 20040107
  2. CODEINE (CODEINE) [Concomitant]
  3. LASIX (FUROSEMIDE, FUROSEMIDE SODIUM) [Concomitant]
  4. ACETYLSALICYLIC ACID SRT [Concomitant]
  5. PREMARIN [Concomitant]
  6. PEPCID [Concomitant]
  7. ATARAX [Concomitant]
  8. ATIVAN [Concomitant]
  9. REMERON [Concomitant]

REACTIONS (2)
  - ASCITES [None]
  - PARACENTESIS [None]
